FAERS Safety Report 7818513-9 (Version None)
Quarter: 2011Q4

REPORT INFORMATION
  Report Type: 
  Country: None (occurrence: None)
  Receive Date: 20111017
  Receipt Date: 20111013
  Transmission Date: 20120403
  Serious: Yes (Hospitalization, Disabling)
  Sender: FDA-Public Use
  Company Number: US-MERCK-0811USA03903

PATIENT
  Age: 69 Year
  Sex: Female

DRUGS (6)
  1. PROMETRIUM [Concomitant]
     Route: 065
  2. ALENDRONATE SODIUM [Suspect]
     Indication: OSTEOPENIA
     Route: 048
     Dates: start: 19950101, end: 20080101
  3. FOSAMAX [Suspect]
     Indication: OSTEOPOROSIS
     Route: 048
     Dates: start: 19950101, end: 20080101
  4. CLIMARA [Concomitant]
     Route: 065
  5. LIPITOR [Concomitant]
     Route: 065
  6. FOSAMAX [Suspect]
     Indication: OSTEOPENIA
     Route: 048
     Dates: start: 19950101, end: 20080101

REACTIONS (5)
  - FALL [None]
  - PAIN [None]
  - ANKLE FRACTURE [None]
  - FOOT FRACTURE [None]
  - FEMUR FRACTURE [None]
